FAERS Safety Report 5771536-6 (Version None)
Quarter: 2008Q2

REPORT INFORMATION
  Report Type: 
  Country: None (occurrence: None)
  Receive Date: 20080611
  Receipt Date: 20080527
  Transmission Date: 20081010
  Serious: Yes (Other)
  Sender: FDA-Public Use
  Company Number: 2008S1009371

PATIENT
  Age: 45 Year
  Sex: Male

DRUGS (4)
  1. BISOPROLOL TABLETS (BISOPROLOL) [Suspect]
     Indication: ATRIAL FIBRILLATION
     Dosage: 2.5 MG; ORAL
     Route: 048
     Dates: start: 20060612, end: 20060614
  2. DIGOXIN [Suspect]
     Indication: ATRIAL FIBRILLATION
     Dosage: 250 UG; ORAL
     Route: 048
     Dates: start: 20060425
  3. WARFARIN SODIUM [Suspect]
     Indication: ATRIAL FIBRILLATION
     Dosage: ORAL
     Route: 048
     Dates: start: 20060220
  4. CRESTOR [Suspect]
     Indication: HYPERCHOLESTEROLAEMIA
     Dosage: 10 MG; ORAL
     Route: 048
     Dates: start: 20060424

REACTIONS (5)
  - ABDOMINAL PAIN [None]
  - BACK PAIN [None]
  - DRUG INTERACTION [None]
  - HAEMATURIA [None]
  - INTERNATIONAL NORMALISED RATIO INCREASED [None]
